FAERS Safety Report 17608713 (Version 2)
Quarter: 2020Q2

REPORT INFORMATION
  Report Type: Spontaneous
  Country: US (occurrence: US)
  Receive Date: 20200401
  Receipt Date: 20200511
  Transmission Date: 20200713
  Serious: No
  Sender: FDA-Public Use
  Company Number: US-GLAXOSMITHKLINE-US2020047748

PATIENT
  Sex: Male
  Weight: 56.24 kg

DRUGS (2)
  1. ADVAIR DISKUS [Suspect]
     Active Substance: FLUTICASONE PROPIONATE\SALMETEROL XINAFOATE
     Dosage: 1 PUFF(S), BID
     Route: 048
     Dates: start: 20200308
  2. ADVAIR DISKUS [Suspect]
     Active Substance: FLUTICASONE PROPIONATE\SALMETEROL XINAFOATE
     Indication: ASTHMA
     Dosage: 1 PUFF(S), BID
     Route: 048

REACTIONS (5)
  - Productive cough [Unknown]
  - Dyspnoea [Unknown]
  - Secretion discharge [Unknown]
  - Cough [Unknown]
  - Wrong technique in device usage process [Unknown]
